FAERS Safety Report 9632088 (Version 1)
Quarter: 2013Q4

REPORT INFORMATION
  Report Type: Spontaneous
  Country: US (occurrence: US)
  Receive Date: 20131018
  Receipt Date: 20131018
  Transmission Date: 20140711
  Serious: Yes (Other)
  Sender: FDA-Public Use
  Company Number: US-PFIZER INC-2013297927

PATIENT
  Age: 87 Year
  Sex: Female
  Weight: 56.24 kg

DRUGS (1)
  1. LYRICA [Suspect]
     Indication: DIABETIC NEUROPATHY
     Dosage: 50 MG, 3X/DAY
     Route: 048
     Dates: start: 20130924, end: 20131014

REACTIONS (5)
  - Lung cancer metastatic [Unknown]
  - Neoplasm recurrence [Unknown]
  - Platelet count decreased [Unknown]
  - Haemolysis [Unknown]
  - Body height decreased [Unknown]
